FAERS Safety Report 17583843 (Version 4)
Quarter: 2022Q1

REPORT INFORMATION
  Report Type: Report from Study
  Country: DE (occurrence: DE)
  Receive Date: 20200326
  Receipt Date: 20220310
  Transmission Date: 20220423
  Serious: Yes (Hospitalization, Other)
  Sender: FDA-Public Use
  Company Number: DE-BRISTOL-MYERS SQUIBB COMPANY-BMS-2018-122013

PATIENT
  Age: 62 Year
  Sex: Female
  Weight: 68 kg

DRUGS (16)
  1. NIVOLUMAB [Suspect]
     Active Substance: NIVOLUMAB
     Indication: Malignant melanoma
     Dosage: 1 DOSAGE FORM, Q3WK
     Route: 065
     Dates: start: 20180322, end: 20180423
  2. NIVOLUMAB [Suspect]
     Active Substance: NIVOLUMAB
     Indication: Lung neoplasm malignant
     Dosage: 1 DOSAGE FORM, Q3WK
     Route: 065
     Dates: start: 20180423, end: 20180423
  3. NIVOLUMAB [Suspect]
     Active Substance: NIVOLUMAB
     Dosage: 1 DOSAGE FORM, Q3WK
     Route: 065
     Dates: start: 20180515
  4. NIVOLUMAB [Suspect]
     Active Substance: NIVOLUMAB
     Dosage: 1 DOSAGE FORM, Q2WK
     Route: 065
     Dates: start: 20180605
  5. NIVOLUMAB [Suspect]
     Active Substance: NIVOLUMAB
     Dosage: 1 DOSAGE FORM, Q2WK
     Route: 065
     Dates: start: 20180706
  6. IPILIMUMAB [Suspect]
     Active Substance: IPILIMUMAB
     Indication: Malignant melanoma
     Dosage: 1 DOSAGE FORM, Q3WK
     Route: 065
     Dates: start: 20180322, end: 20180423
  7. IPILIMUMAB [Suspect]
     Active Substance: IPILIMUMAB
     Indication: Lung neoplasm malignant
     Dosage: 1 DOSAGE FORM, Q3WK
     Route: 065
     Dates: start: 20180515
  8. IPILIMUMAB [Suspect]
     Active Substance: IPILIMUMAB
     Dosage: 1 DOSAGE FORM, Q3WK
     Route: 065
     Dates: start: 20180605
  9. PANTOZOL [Concomitant]
     Active Substance: PANTOPRAZOLE SODIUM
     Indication: Prophylaxis
     Dosage: 40 MILLIGRAM, QD
     Route: 048
     Dates: start: 20170404
  10. CANDESARTAN [Concomitant]
     Active Substance: CANDESARTAN
     Indication: Product used for unknown indication
     Dosage: 2 UNIT, QD
     Route: 048
     Dates: start: 20170404
  11. LETROZOLE [Concomitant]
     Active Substance: LETROZOLE
     Indication: Product used for unknown indication
     Dosage: 1 DOSAGE FORM, QD
     Route: 048
     Dates: start: 20170505
  12. IBUPROFEN [Concomitant]
     Active Substance: IBUPROFEN
     Indication: Product used for unknown indication
     Dosage: 1 DOSAGE FORM, QD
     Route: 048
     Dates: start: 20170404
  13. PREDNISOLONE [Concomitant]
     Active Substance: PREDNISOLONE
     Indication: Product used for unknown indication
     Dosage: 60 MILLIGRAM, QD
     Route: 048
     Dates: start: 20180719, end: 20180724
  14. PREDNISOLONE [Concomitant]
     Active Substance: PREDNISOLONE
     Dosage: 30 MILLIGRAM, QD
     Route: 048
     Dates: start: 20181127, end: 20190102
  15. PREDNISOLONE [Concomitant]
     Active Substance: PREDNISOLONE
     Dosage: 20 MILLIGRAM, QD
     Route: 048
     Dates: start: 20190103
  16. PREDNISOLONE [Concomitant]
     Active Substance: PREDNISOLONE
     Dosage: 5 MILLIGRAM
     Route: 048
     Dates: start: 20190826, end: 20191020

REACTIONS (2)
  - Immune-mediated lung disease [Recovered/Resolved]
  - Autoimmune arthritis [Unknown]

NARRATIVE: CASE EVENT DATE: 20181102
